FAERS Safety Report 14605414 (Version 1)
Quarter: 2018Q1

REPORT INFORMATION
  Report Type: Spontaneous
  Country: ES (occurrence: ES)
  Receive Date: 20180306
  Receipt Date: 20180306
  Transmission Date: 20180509
  Serious: Yes (Other)
  Sender: FDA-Public Use
  Company Number: ES-B. BRAUN MEDICAL INC.-2043096

PATIENT
  Age: 104 Year
  Sex: Male

DRUGS (1)
  1. METRONIDAZOLE INJECTION USP (5 MG/ML) IN PAB? PLASTIC CONTAINER [Suspect]
     Active Substance: METRONIDAZOLE
     Route: 065

REACTIONS (2)
  - Hypokalaemia [None]
  - Urinary retention [None]
